FAERS Safety Report 15296516 (Version 3)
Quarter: 2018Q3

REPORT INFORMATION
  Report Type: Spontaneous
  Country: US (occurrence: US)
  Receive Date: 20180820
  Receipt Date: 20180928
  Transmission Date: 20181010
  Serious: No
  Sender: FDA-Public Use
  Company Number: PHEH2018US033589

PATIENT
  Sex: Female

DRUGS (2)
  1. LATANOPROST. [Suspect]
     Active Substance: LATANOPROST
     Indication: INTRAOCULAR PRESSURE INCREASED
     Dosage: UNK
     Route: 047
     Dates: start: 20180523
  2. AMBIEN [Suspect]
     Active Substance: ZOLPIDEM TARTRATE
     Indication: PRODUCT USED FOR UNKNOWN INDICATION
     Route: 065

REACTIONS (20)
  - Vision blurred [Unknown]
  - Fall [Unknown]
  - Malaise [Unknown]
  - Peripheral swelling [Unknown]
  - Spinal pain [Unknown]
  - Wrong technique in product usage process [Unknown]
  - Disturbance in attention [Unknown]
  - Neck pain [Unknown]
  - Back pain [Unknown]
  - Skin discolouration [Unknown]
  - Product packaging issue [Unknown]
  - Balance disorder [Unknown]
  - Product quality issue [Unknown]
  - Incorrect dose administered [Unknown]
  - Abdominal discomfort [Unknown]
  - Fatigue [Unknown]
  - Feeling abnormal [Unknown]
  - Pain in extremity [Unknown]
  - Dizziness [Unknown]
  - Skeletal injury [Unknown]
